FAERS Safety Report 14996617 (Version 1)
Quarter: 2018Q2

REPORT INFORMATION
  Report Type: Spontaneous
  Country: FR (occurrence: FR)
  Receive Date: 20180611
  Receipt Date: 20180611
  Transmission Date: 20180711
  Serious: Yes (Other)
  Sender: FDA-Public Use
  Company Number: FR-ELI_LILLY_AND_COMPANY-FR201805014832

PATIENT
  Age: 80 Year
  Sex: Female

DRUGS (4)
  1. FORSTEO 250UG/ML [Suspect]
     Active Substance: TERIPARATIDE
     Indication: OSTEOPOROSIS
     Dosage: UNK, UNKNOWN
     Route: 065
     Dates: start: 201803
  2. TRAMADOL. [Concomitant]
     Active Substance: TRAMADOL
     Indication: BLOOD PRESSURE MEASUREMENT
     Route: 065
  3. FORSTEO 250UG/ML [Suspect]
     Active Substance: TERIPARATIDE
     Indication: MOVEMENT DISORDER
  4. FORSTEO 250UG/ML [Suspect]
     Active Substance: TERIPARATIDE
     Indication: BACK DISORDER
     Dosage: UNK
     Dates: start: 20180421

REACTIONS (5)
  - Hypokinesia [Unknown]
  - Movement disorder [Unknown]
  - Fatigue [Unknown]
  - Hot flush [Unknown]
  - Visual impairment [Unknown]
